FAERS Safety Report 7256589-0 (Version None)
Quarter: 2011Q1

REPORT INFORMATION
  Report Type: 
  Country: None (occurrence: None)
  Receive Date: 20110129
  Receipt Date: 20100714
  Transmission Date: 20110831
  Serious: No
  Sender: FDA-Public Use
  Company Number: US-ABBOTT-10P-163-0659195-00

PATIENT
  Sex: Male
  Weight: 81.72 kg

DRUGS (7)
  1. CRYSTALLINE VIT B12 INJ [Concomitant]
     Indication: PRODUCT USED FOR UNKNOWN INDICATION
  2. IRON [Concomitant]
     Indication: PRODUCT USED FOR UNKNOWN INDICATION
  3. CELESTONE [Concomitant]
     Indication: HYPERSENSITIVITY
     Route: 058
  4. FOLIC ACID [Concomitant]
     Indication: PRODUCT USED FOR UNKNOWN INDICATION
  5. XANAX [Concomitant]
     Indication: PRODUCT USED FOR UNKNOWN INDICATION
  6. VALIUM [Concomitant]
     Indication: STRESS
  7. HUMIRA [Suspect]
     Indication: CROHN'S DISEASE
     Dates: start: 20090301

REACTIONS (3)
  - RESPIRATORY TRACT INFECTION [None]
  - SKIN ATROPHY [None]
  - FATIGUE [None]
